FAERS Safety Report 23636952 (Version 1)
Quarter: 2024Q1

REPORT INFORMATION
  Report Type: Other
  Country: CN (occurrence: None)
  Receive Date: 20240315
  Receipt Date: 20240315
  Transmission Date: 20240410
  Serious: Yes (Hospitalization, Other)
  Sender: FDA-Public Use
  Company Number: CN-ROCHE-3521645

PATIENT
  Age: 44 Year
  Sex: Female

DRUGS (3)
  1. BEVACIZUMAB [Suspect]
     Active Substance: BEVACIZUMAB
     Indication: Ovarian cancer recurrent
     Route: 065
     Dates: start: 20220308, end: 20220908
  2. CARBOPLATIN [Suspect]
     Active Substance: CARBOPLATIN
     Indication: Ovarian cancer recurrent
     Route: 065
     Dates: start: 20220308, end: 20220908
  3. DOXORUBICIN [Suspect]
     Active Substance: DOXORUBICIN
     Indication: Ovarian cancer recurrent
     Route: 065
     Dates: start: 20220308, end: 20220908

REACTIONS (4)
  - Myelosuppression [Recovered/Resolved]
  - Thrombocytopenia [Recovered/Resolved]
  - Anaemia [Recovered/Resolved]
  - Acquired amegakaryocytic thrombocytopenia [Recovered/Resolved]

NARRATIVE: CASE EVENT DATE: 20220801
